FAERS Safety Report 20476953 (Version 1)
Quarter: 2022Q1

REPORT INFORMATION
  Report Type: Spontaneous
  Country: US (occurrence: US)
  Receive Date: 20220215
  Receipt Date: 20220215
  Transmission Date: 20220424
  Serious: No
  Sender: FDA-Public Use
  Company Number: US-PFIZER INC-2021488141

PATIENT
  Age: 7 Year
  Sex: Male
  Weight: 34.014 kg

DRUGS (4)
  1. GENOTROPIN [Suspect]
     Active Substance: SOMATROPIN
     Indication: Growth hormone deficiency
     Dosage: 0.8 MG
  2. GENOTROPIN [Suspect]
     Active Substance: SOMATROPIN
     Dosage: 1.8 MG, DAILY
     Dates: start: 20190208
  3. GENOTROPIN [Suspect]
     Active Substance: SOMATROPIN
     Dosage: DAILY, ALTERNATING BETWEEN 1.8 AND 2
  4. GENOTROPIN [Suspect]
     Active Substance: SOMATROPIN
     Dosage: DAILY, ALTERNATING BETWEEN 1.8 AND 2

REACTIONS (2)
  - Poor quality device used [Unknown]
  - Needle issue [Not Recovered/Not Resolved]
